FAERS Safety Report 25177133 (Version 1)
Quarter: 2025Q2

REPORT INFORMATION
  Report Type: Spontaneous
  Country: FR (occurrence: FR)
  Receive Date: 20250409
  Receipt Date: 20250409
  Transmission Date: 20250717
  Serious: Yes (Life-Threatening, Other)
  Sender: AUROBINDO
  Company Number: FR-AFSSAPS-NT2025000234

PATIENT
  Age: 93 Year
  Sex: Male
  Weight: 63 kg

DRUGS (2)
  1. AMIODARONE [Interacting]
     Active Substance: AMIODARONE
     Indication: Product used for unknown indication
     Dosage: 200 MILLIGRAM, ONCE A DAY
     Route: 048
     Dates: start: 2023, end: 20250319
  2. ELIQUIS [Interacting]
     Active Substance: APIXABAN
     Indication: Atrial fibrillation
     Dosage: 5 MILLIGRAM, ONCE A DAY [2.5 MG MATIN ET SOIR]
     Route: 048
     Dates: start: 2023, end: 20250311

REACTIONS (2)
  - Melaena [Recovered/Resolved]
  - Red blood cell transfusion [Recovered/Resolved]

NARRATIVE: CASE EVENT DATE: 20241224
